FAERS Safety Report 6197894-9 (Version None)
Quarter: 2009Q2

REPORT INFORMATION
  Report Type: 
  Country: None (occurrence: None)
  Receive Date: 20090521
  Receipt Date: 20090515
  Transmission Date: 20091009
  Serious: Yes (Disabling)
  Sender: FDA-Public Use
  Company Number: A0784587A

PATIENT
  Age: 39 Year
  Sex: Female

DRUGS (11)
  1. LAMICTAL [Suspect]
     Indication: BIPOLAR DISORDER
     Route: 048
     Dates: start: 20090301, end: 20090511
  2. ADVAIR HFA [Concomitant]
  3. ALBUTEROL [Concomitant]
  4. CALAN [Concomitant]
  5. CLONAZEPAM [Concomitant]
  6. CYMBALTA [Concomitant]
  7. INTAL [Concomitant]
  8. NASONEX [Concomitant]
  9. SINGULAIR [Concomitant]
  10. TYLENOL W/ CODEINE [Concomitant]
  11. ZOVIRAX [Concomitant]

REACTIONS (5)
  - ANAEMIA [None]
  - ORAL MUCOSAL EXFOLIATION [None]
  - PAIN IN EXTREMITY [None]
  - SWOLLEN TONGUE [None]
  - TONGUE EXFOLIATION [None]
